FAERS Safety Report 8123742-3 (Version None)
Quarter: 2012Q1

REPORT INFORMATION
  Report Type: 
  Country: None (occurrence: None)
  Receive Date: 20120208
  Receipt Date: 20120201
  Transmission Date: 20120608
  Serious: Yes (Hospitalization, Disabling, Other)
  Sender: FDA-Public Use
  Company Number: US-MERCK-1106USA01963

PATIENT
  Age: 53 Year
  Sex: Female
  Weight: 71 kg

DRUGS (4)
  1. FOSAMAX [Suspect]
     Indication: OSTEOPOROSIS
     Route: 048
     Dates: start: 20070120, end: 20081101
  2. VITAMIN D (UNSPECIFIED) [Concomitant]
     Route: 065
     Dates: start: 19850101
  3. FOSAMAX [Suspect]
     Route: 048
     Dates: start: 20020205, end: 20090101
  4. CALCIUM (UNSPECIFIED) [Concomitant]
     Route: 065
     Dates: start: 19850101

REACTIONS (21)
  - URINARY INCONTINENCE [None]
  - HIP FRACTURE [None]
  - BASAL CELL CARCINOMA [None]
  - FALL [None]
  - JOINT INJURY [None]
  - COLONIC POLYP [None]
  - VERTIGO [None]
  - VAGINAL DISCHARGE [None]
  - AMNESIA [None]
  - TREATMENT RELATED SECONDARY MALIGNANCY [None]
  - RADIATION NECROSIS [None]
  - DIPLOPIA [None]
  - OEDEMA PERIPHERAL [None]
  - BRAIN NEOPLASM [None]
  - ABASIA [None]
  - INFECTION [None]
  - NEOPLASM MALIGNANT [None]
  - ATROPHIC VULVOVAGINITIS [None]
  - OSTEOPENIA [None]
  - TOOTH LOSS [None]
  - GALLBLADDER DISORDER [None]
